FAERS Safety Report 22147019 (Version 1)
Quarter: 2023Q1

REPORT INFORMATION
  Report Type: Spontaneous
  Country: US (occurrence: US)
  Receive Date: 20230328
  Receipt Date: 20230328
  Transmission Date: 20230417
  Serious: No
  Sender: FDA-Public Use
  Company Number: US-Nobelpharma America, LLC-NPA-2023-00426

PATIENT
  Age: 15 Year
  Sex: Female

DRUGS (1)
  1. HYFTOR [Suspect]
     Active Substance: SIROLIMUS
     Indication: Benign neoplasm of skin
     Dosage: APPLY 1 APPLICATION TO AFFECTED AREA ONCE DAILY; ROUTE REPORTED AS EXTERNAL
     Dates: start: 20230207

REACTIONS (2)
  - Dry skin [Unknown]
  - Off label use [None]

NARRATIVE: CASE EVENT DATE: 20230101
